FAERS Safety Report 5189204-0 (Version None)
Quarter: 2006Q4

REPORT INFORMATION
  Report Type: 
  Country: None (occurrence: None)
  Receive Date: 20061215
  Receipt Date: 20061109
  Transmission Date: 20070319
  Serious: Yes (Hospitalization, Other)
  Sender: FDA-Public Use
  Company Number: 2006142193

PATIENT
  Age: 78 Year
  Sex: 0
  Weight: 90.7194 kg

DRUGS (2)
  1. CELEBREX [Suspect]
     Indication: BACK PAIN
     Dosage: 200 MG (200 MG, 1 IN 1 D)
     Dates: start: 19990429, end: 20041202
  2. ASPIRIN (ACETYLSALYLICYLIC ACID) [Concomitant]

REACTIONS (1)
  - CEREBROVASCULAR ACCIDENT [None]
